FAERS Safety Report 17999237 (Version 6)
Quarter: 2021Q3

REPORT INFORMATION
  Report Type: Report from Study
  Country: CL (occurrence: CL)
  Receive Date: 20200709
  Receipt Date: 20210706
  Transmission Date: 20211014
  Serious: Yes (Other)
  Sender: FDA-Public Use
  Company Number: NVSC2020CL192909

PATIENT
  Age: 64 Year
  Sex: Female

DRUGS (8)
  1. KISQALI [Suspect]
     Active Substance: RIBOCICLIB
     Indication: BREAST CANCER
     Dosage: 600 MG, QD
     Route: 048
     Dates: start: 20180712
  2. ANASTROZOLE. [Concomitant]
     Active Substance: ANASTROZOLE
     Indication: PRODUCT USED FOR UNKNOWN INDICATION
     Dosage: UNK
     Route: 065
  3. METFORMIN [Concomitant]
     Active Substance: METFORMIN HYDROCHLORIDE
     Indication: PRODUCT USED FOR UNKNOWN INDICATION
     Dosage: 750 MG, QD
     Route: 065
  4. KISQALI [Suspect]
     Active Substance: RIBOCICLIB
     Dosage: 600 MG/KG (21 DAYS SCHEME AND 7 DAYS REST)
     Route: 048
  5. LANSOPRAZOLE. [Concomitant]
     Active Substance: LANSOPRAZOLE
     Indication: PRODUCT USED FOR UNKNOWN INDICATION
     Dosage: UNK
     Route: 065
  6. VITAMIN D [Concomitant]
     Active Substance: VITAMIN D NOS
     Indication: PRODUCT USED FOR UNKNOWN INDICATION
     Dosage: UNK
     Route: 065
  7. ATORVASTATIN [Concomitant]
     Active Substance: ATORVASTATIN
     Indication: HYPERCHOLESTEROLAEMIA
     Dosage: 10 MG, QD
     Route: 048
     Dates: end: 20190114
  8. CLONEX [Concomitant]
     Indication: PRODUCT USED FOR UNKNOWN INDICATION
     Dosage: UNK
     Route: 065

REACTIONS (23)
  - Arrhythmia [Unknown]
  - Fear [Unknown]
  - Neutrophil count [Unknown]
  - Electrocardiogram abnormal [Unknown]
  - Lymphocyte count [Unknown]
  - Mean cell volume abnormal [Unknown]
  - Cardiac disorder [Unknown]
  - Anisocytosis [Unknown]
  - Myocardial infarction [Unknown]
  - Elliptocytosis [Unknown]
  - Musculoskeletal discomfort [Unknown]
  - Macrocytosis [Unknown]
  - Blood creatinine [Unknown]
  - Chest discomfort [Unknown]
  - Red blood cell count abnormal [Unknown]
  - Haemoglobin abnormal [Unknown]
  - White blood cell count [Unknown]
  - Bundle branch block right [Unknown]
  - Haematocrit abnormal [Unknown]
  - Red cell distribution width abnormal [Unknown]
  - Red blood cell sedimentation rate abnormal [Unknown]
  - Rouleaux formation [Unknown]
  - Blood alkaline phosphatase [Unknown]

NARRATIVE: CASE EVENT DATE: 20200703
